FAERS Safety Report 7965777-7 (Version None)
Quarter: 2011Q4

REPORT INFORMATION
  Report Type: 
  Country: None (occurrence: None)
  Receive Date: 20111208
  Receipt Date: 20111129
  Transmission Date: 20120403
  Serious: Yes (Other)
  Sender: FDA-Public Use
  Company Number: US-ELI_LILLY_AND_COMPANY-US201112000692

PATIENT
  Sex: Female

DRUGS (1)
  1. HUMALOG [Suspect]
     Indication: DIABETES MELLITUS
     Dosage: UNK
     Dates: start: 19810101

REACTIONS (4)
  - PRODUCT QUALITY ISSUE [None]
  - BLINDNESS [None]
  - VISUAL ACUITY REDUCED [None]
  - DIABETIC RETINOPATHY [None]
